FAERS Safety Report 14685493 (Version 2)
Quarter: 2018Q3

REPORT INFORMATION
  Report Type: Spontaneous
  Country: IT (occurrence: IT)
  Receive Date: 20180327
  Receipt Date: 20180726
  Transmission Date: 20181010
  Serious: Yes (Hospitalization)
  Sender: FDA-Public Use
  Company Number: IT-TEVA-2018-IT-870734

PATIENT
  Age: 87 Year
  Sex: Female

DRUGS (9)
  1. CARDIOASPIRIN [Interacting]
     Active Substance: ASPIRIN
     Route: 048
  2. VERAPAMIL HYDROCHLORIDE. [Concomitant]
     Active Substance: VERAPAMIL HYDROCHLORIDE
  3. LANOXIN [Concomitant]
     Active Substance: DIGOXIN
  4. EN [Suspect]
     Active Substance: DELORAZEPAM
     Dosage: INTERACTING DRUGS
     Route: 048
  5. OLANZAPINE. [Suspect]
     Active Substance: OLANZAPINE
     Route: 048
  6. DEPAMAG [Interacting]
     Active Substance: VALPROATE MAGNESIUM
     Route: 048
  7. SINEMET [Concomitant]
     Active Substance: CARBIDOPA\LEVODOPA
  8. DIUREMID [Concomitant]
     Route: 065
  9. SELECOM 5 MG COMPRESSE [Concomitant]

REACTIONS (2)
  - Drug interaction [Not Recovered/Not Resolved]
  - Toxicity to various agents [Not Recovered/Not Resolved]

NARRATIVE: CASE EVENT DATE: 20170609
